FAERS Safety Report 13539807 (Version 1)
Quarter: 2017Q2

REPORT INFORMATION
  Report Type: Spontaneous
  Country: US (occurrence: US)
  Receive Date: 20170512
  Receipt Date: 20170512
  Transmission Date: 20170830
  Serious: No
  Sender: FDA-Public Use
  Company Number: US-JNJFOC-20170425955

PATIENT
  Age: 53 Year
  Sex: Male

DRUGS (2)
  1. ZYRTEC [Suspect]
     Active Substance: CETIRIZINE HYDROCHLORIDE
     Route: 048
  2. ZYRTEC [Suspect]
     Active Substance: CETIRIZINE HYDROCHLORIDE
     Indication: MULTIPLE ALLERGIES
     Dosage: 3 TO 4 DAYS PRIOR TO THE TIME OF REPORT
     Route: 048
     Dates: start: 201704

REACTIONS (1)
  - Hiccups [Not Recovered/Not Resolved]

NARRATIVE: CASE EVENT DATE: 201704
